FAERS Safety Report 19047530 (Version 1)
Quarter: 2021Q1

REPORT INFORMATION
  Report Type: Spontaneous
  Country: US (occurrence: US)
  Receive Date: 20210323
  Receipt Date: 20210323
  Transmission Date: 20210420
  Serious: No
  Sender: FDA-Public Use
  Company Number: US-MYLANLABS-2021M1016753

PATIENT
  Sex: Female

DRUGS (2)
  1. LEVOTHYROXINE SODIUM TABLETS, USP [Suspect]
     Active Substance: LEVOTHYROXINE SODIUM
     Indication: THYROIDECTOMY
     Dosage: 100 MILLIGRAM
  2. LEVOTHYROXINE SODIUM TABLETS, USP [Suspect]
     Active Substance: LEVOTHYROXINE SODIUM
     Dosage: 88 MILLIGRAM

REACTIONS (14)
  - Alopecia [Unknown]
  - Drug ineffective [Unknown]
  - Feeling abnormal [Unknown]
  - Muscle spasms [Unknown]
  - Myalgia [Unknown]
  - Depression [Unknown]
  - Temperature intolerance [Unknown]
  - Irritability [Unknown]
  - Skin disorder [Unknown]
  - Constipation [Unknown]
  - Weight increased [Unknown]
  - Headache [Unknown]
  - Insomnia [Unknown]
  - Fatigue [Unknown]
